FAERS Safety Report 24361490 (Version 3)
Quarter: 2024Q4

REPORT INFORMATION
  Report Type: Report from Study
  Country: US (occurrence: US)
  Receive Date: 20240925
  Receipt Date: 20241210
  Transmission Date: 20250114
  Serious: Yes (Other)
  Sender: ASTELLAS
  Company Number: US-ASTELLAS-2023US023408

PATIENT
  Age: 81 Year
  Sex: Male

DRUGS (4)
  1. ENZALUTAMIDE [Suspect]
     Active Substance: ENZALUTAMIDE
     Indication: Prostate cancer
     Dosage: 160 MG, ONCE DAILY
     Route: 048
     Dates: start: 20230602, end: 20231013
  2. ENZALUTAMIDE [Suspect]
     Active Substance: ENZALUTAMIDE
     Indication: Metastatic lymphoma
     Dosage: 120 MG, ONCE DAILY
     Route: 048
     Dates: start: 20231014
  3. ENZALUTAMIDE [Suspect]
     Active Substance: ENZALUTAMIDE
     Indication: Bone cancer
     Dosage: 120 MG, ONCE DAILY, ONGOING
     Route: 048
     Dates: start: 2023, end: 20241129
  4. EFFEXOR [Suspect]
     Active Substance: VENLAFAXINE HYDROCHLORIDE
     Indication: Product used for unknown indication
     Dosage: UNK UNK, UNKNOWN FREQ.
     Route: 065

REACTIONS (18)
  - Diabetes mellitus inadequate control [Not Recovered/Not Resolved]
  - Neuropathy peripheral [Unknown]
  - Hot flush [Not Recovered/Not Resolved]
  - Peripheral coldness [Unknown]
  - Gait disturbance [Unknown]
  - Vomiting [Unknown]
  - Insulin resistance [Unknown]
  - Ear discomfort [Unknown]
  - Feeling abnormal [Unknown]
  - Muscular weakness [Unknown]
  - Insomnia [Unknown]
  - Dizziness [Unknown]
  - Somnolence [Unknown]
  - Nocturia [Unknown]
  - Hypoaesthesia [Unknown]
  - Fatigue [Unknown]
  - Asthenia [Unknown]
  - Decreased activity [Unknown]

NARRATIVE: CASE EVENT DATE: 20230605
